FAERS Safety Report 4316858-0 (Version None)
Quarter: 2004Q1

REPORT INFORMATION
  Report Type: 
  Country: None (occurrence: None)
  Receive Date: 20040311
  Receipt Date: 20040301
  Transmission Date: 20041129
  Serious: Yes (Other)
  Sender: FDA-Public Use
  Company Number: K200301737

PATIENT
  Age: 30 Year
  Sex: Female
  Weight: 84.4 kg

DRUGS (4)
  1. LEVOXYL [Suspect]
     Indication: HYPOTHYROIDISM
     Dosage: 200 MCG, QD, ORAL
     Route: 048
     Dates: start: 20020601
  2. PRENATAL (ASCORBIC ACID, CALCIUM GLUCONATE, CUPRIC CARBONATE, BASIC, C [Concomitant]
  3. CORTICOSTEROIDS [Concomitant]
  4. ZENAPAX [Concomitant]

REACTIONS (7)
  - CHOKING [None]
  - COMPLICATIONS OF MATERNAL EXPOSURE TO THERAPEUTIC DRUGS [None]
  - COUGH [None]
  - ORAL DISCOMFORT [None]
  - PHARMACEUTICAL PRODUCT COMPLAINT [None]
  - PREGNANCY [None]
  - THROAT IRRITATION [None]
